FAERS Safety Report 7537938-2 (Version None)
Quarter: 2011Q2

REPORT INFORMATION
  Report Type: 
  Country: None (occurrence: None)
  Receive Date: 20110609
  Receipt Date: 20110601
  Transmission Date: 20111010
  Serious: Yes (Hospitalization)
  Sender: FDA-Public Use
  Company Number: DE-GENENTECH-319748

PATIENT
  Age: 44 Year
  Sex: Male
  Weight: 89 kg

DRUGS (3)
  1. COTRIM [Concomitant]
     Indication: PRODUCT USED FOR UNKNOWN INDICATION
     Dosage: DAILY DOSE: 1-0-1
     Dates: start: 20110502
  2. BENDAMUSTINE [Suspect]
     Indication: CHRONIC LYMPHOCYTIC LEUKAEMIA
     Dosage: 190 MG, UNK
     Route: 042
     Dates: start: 20110502
  3. RITUXIMAB [Suspect]
     Indication: CHRONIC LYMPHOCYTIC LEUKAEMIA
     Dosage: 1060 MG, UNK
     Route: 042
     Dates: start: 20110502, end: 20110531

REACTIONS (2)
  - INFUSION RELATED REACTION [None]
  - CYTOKINE RELEASE SYNDROME [None]
